FAERS Safety Report 12784945 (Version 1)
Quarter: 2016Q3

REPORT INFORMATION
  Report Type: Spontaneous
  Country: US (occurrence: US)
  Receive Date: 20160927
  Receipt Date: 20160927
  Transmission Date: 20161109
  Serious: No
  Sender: FDA-Public Use
  Company Number: US-IGSA-GTI003382

PATIENT
  Age: 50 Year
  Sex: Male
  Weight: 116 kg

DRUGS (19)
  1. METFORMIN [Concomitant]
     Active Substance: METFORMIN HYDROCHLORIDE
  2. DEXLANSOPRAZOLE [Concomitant]
     Active Substance: DEXLANSOPRAZOLE
  3. ACETAMINOPHEN W/HYDROCODONE [Concomitant]
     Active Substance: ACETAMINOPHEN\HYDROCODONE
  4. POLYETHYLENE GLYCOL [Concomitant]
     Active Substance: POLYETHYLENE GLYCOLS
  5. LITHIUM. [Concomitant]
     Active Substance: LITHIUM
  6. PROLASTIN-C [Suspect]
     Active Substance: .ALPHA.1-PROTEINASE INHIBITOR HUMAN
     Indication: ALPHA-1 ANTI-TRYPSIN DEFICIENCY
     Route: 042
     Dates: start: 20150720
  7. ACLIDINIUM [Concomitant]
     Active Substance: ACLIDINIUM BROMIDE
  8. PREGABALIN. [Concomitant]
     Active Substance: PREGABALIN
  9. LORATADINE. [Concomitant]
     Active Substance: LORATADINE
  10. OLMESARTAN [Concomitant]
     Active Substance: OLMESARTAN
  11. ACETYLSALICYLIC ACID W/CAFFEINE/PARACETAMOL [Concomitant]
     Active Substance: ACETAMINOPHEN\ASPIRIN\CAFFEINE\CODEINE PHOSPHATE
  12. PREDNISONE. [Concomitant]
     Active Substance: PREDNISONE
  13. TRAMADOL. [Concomitant]
     Active Substance: TRAMADOL
  14. ALBUTEROL SULFATE. [Concomitant]
     Active Substance: ALBUTEROL SULFATE
  15. ONDANSETRON [Concomitant]
     Active Substance: ONDANSETRON
  16. INSULIN ASPART [Concomitant]
     Active Substance: INSULIN ASPART
  17. LIDOCAINE. [Concomitant]
     Active Substance: LIDOCAINE
  18. CLOBETASOL [Concomitant]
     Active Substance: CLOBETASOL
  19. CLONAZEPAM. [Concomitant]
     Active Substance: CLONAZEPAM

REACTIONS (2)
  - Fatigue [Recovered/Resolved]
  - Infusion site irritation [Recovering/Resolving]

NARRATIVE: CASE EVENT DATE: 20150721
